FAERS Safety Report 5233708-9 (Version None)
Quarter: 2007Q1

REPORT INFORMATION
  Report Type: 
  Country: None (occurrence: None)
  Receive Date: 20070208
  Receipt Date: 20070130
  Transmission Date: 20070707
  Serious: Yes (Disabling)
  Sender: FDA-Public Use
  Company Number: FR-GLAXOSMITHKLINE-B0450352A

PATIENT
  Age: 21 Year
  Sex: Female
  Weight: 85 kg

DRUGS (2)
  1. ARIXTRA [Suspect]
     Indication: PERIPHLEBITIS
     Dosage: 7.5MG PER DAY
     Route: 058
     Dates: start: 20061111, end: 20061116
  2. MICROVAL [Concomitant]
     Indication: CONTRACEPTION

REACTIONS (5)
  - DIZZINESS [None]
  - HYPERHIDROSIS [None]
  - MALAISE [None]
  - OFF LABEL USE [None]
  - SYNCOPE [None]
